FAERS Safety Report 7875777-3 (Version None)
Quarter: 2011Q4

REPORT INFORMATION
  Report Type: 
  Country: None (occurrence: None)
  Receive Date: 20111031
  Receipt Date: 20111024
  Transmission Date: 20120403
  Serious: Yes (Death)
  Sender: FDA-Public Use
  Company Number: FR-JNJFOC-20111012865

PATIENT

DRUGS (33)
  1. ELDISINE [Suspect]
     Route: 065
  2. ELDISINE [Suspect]
     Indication: LYMPHOMA
     Route: 065
  3. IFOSFAMIDE [Suspect]
     Indication: LYMPHOMA
     Route: 065
  4. DOXORUBICIN HCL [Suspect]
     Route: 042
  5. DOXORUBICIN HCL [Suspect]
     Route: 042
  6. ELDISINE [Suspect]
     Route: 065
  7. PREDNISONE [Suspect]
     Indication: LYMPHOMA
     Route: 048
  8. BLEOMYCIN SULFATE [Suspect]
     Route: 042
  9. CYTARABINE [Suspect]
     Indication: LYMPHOMA
     Route: 065
  10. CYCLOPHOSPHAMIDE [Suspect]
     Route: 065
  11. MESNA [Suspect]
     Route: 042
  12. MESNA [Suspect]
     Route: 042
  13. ELDISINE [Suspect]
     Route: 065
  14. BLEOMYCIN SULFATE [Suspect]
     Route: 042
  15. METHOTREXATE [Suspect]
     Indication: LYMPHOMA
     Route: 037
  16. ETOPOSIDE [Suspect]
     Indication: LYMPHOMA
     Route: 065
  17. IFOSFAMIDE [Suspect]
     Route: 065
  18. DOXORUBICIN HCL [Suspect]
     Route: 042
  19. CYTARABINE [Suspect]
     Route: 065
  20. LEUCOVORIN CALCIUM [Concomitant]
     Route: 065
  21. CYCLOPHOSPHAMIDE [Suspect]
     Indication: LYMPHOMA
     Route: 065
  22. CYCLOPHOSPHAMIDE [Suspect]
     Route: 065
  23. CYCLOPHOSPHAMIDE [Suspect]
     Route: 065
  24. MESNA [Suspect]
     Indication: LYMPHOMA
     Route: 042
  25. MESNA [Suspect]
     Route: 042
  26. DOXORUBICIN HCL [Suspect]
     Indication: LYMPHOMA
     Route: 042
  27. BLEOMYCIN SULFATE [Suspect]
     Indication: LYMPHOMA
     Route: 042
  28. BLEOMYCIN SULFATE [Suspect]
     Route: 042
  29. METHOTREXATE [Suspect]
     Route: 065
  30. METHOTREXATE [Suspect]
     Route: 065
  31. IFOSFAMIDE [Suspect]
     Route: 065
  32. IFOSFAMIDE [Suspect]
     Route: 065
  33. NEUPOGEN [Concomitant]
     Route: 065

REACTIONS (1)
  - DEATH [None]
